FAERS Safety Report 8601051-3 (Version None)
Quarter: 2012Q3

REPORT INFORMATION
  Report Type: 
  Country: None (occurrence: None)
  Receive Date: 20120817
  Receipt Date: 20120808
  Transmission Date: 20120928
  Serious: Yes (Hospitalization)
  Sender: FDA-Public Use
  Company Number: GR-CELGENEUS-066-C5013-12011981

PATIENT
  Sex: Female
  Weight: 63 kg

DRUGS (15)
  1. THALIDOMIDE [Suspect]
     Indication: MULTIPLE MYELOMA
     Dosage: 100 MILLIGRAM
     Route: 048
     Dates: start: 20101206
  2. THALIDOMIDE [Suspect]
     Dosage: 25 MILLIGRAM
     Route: 048
     Dates: start: 20120105, end: 20120110
  3. HNMTHIPRIM [Concomitant]
     Indication: PROPHYLAXIS
     Route: 048
     Dates: start: 20101126
  4. ALLOPURINOL [Concomitant]
     Dosage: 100 MILLIGRAM
     Route: 048
     Dates: start: 20101126
  5. MELPHALAN HYDROCHLORIDE [Suspect]
     Indication: MULTIPLE MYELOMA
     Dosage: 6 MILLIGRAM
     Route: 048
     Dates: start: 20101206
  6. RABEPRAZOLE SODIUM [Concomitant]
     Indication: GASTRITIS PROPHYLAXIS
     Dosage: 20 MILLIGRAM
     Route: 048
     Dates: start: 20101126
  7. SULFAMETHOXAZOLE [Concomitant]
     Indication: PROPHYLAXIS
     Dosage: 800/160MG
     Route: 048
     Dates: start: 20101126
  8. PREDNISONE TAB [Suspect]
     Indication: MULTIPLE MYELOMA
     Dosage: 105 MILLIGRAM
     Route: 048
     Dates: start: 20101206
  9. PREDNISONE TAB [Suspect]
     Dosage: 120 MILLIGRAM
     Route: 048
     Dates: start: 20120105, end: 20120108
  10. VALACICLOVIR [Concomitant]
     Indication: PROPHYLAXIS
     Dosage: 500 MILLIGRAM
     Route: 048
     Dates: start: 20101126
  11. TIOTROPIUM [Concomitant]
     Indication: CHRONIC OBSTRUCTIVE PULMONARY DISEASE
     Dosage: 18 MILLIGRAM
     Route: 048
     Dates: start: 20060101
  12. LACTULOSE [Concomitant]
     Indication: CONSTIPATION
     Dosage: 30 MILLILITER
     Route: 048
     Dates: start: 20101222
  13. MELPHALAN HYDROCHLORIDE [Suspect]
     Dosage: 6 MILLIGRAM
     Route: 048
     Dates: start: 20120105, end: 20120108
  14. FLUTICASONE PROPIONATE [Concomitant]
     Dosage: 125 MICROGRAM
     Route: 055
     Dates: start: 20060101
  15. ASPIRIN [Concomitant]
     Dosage: 100 MILLIGRAM
     Route: 048
     Dates: start: 20101229

REACTIONS (1)
  - BREAST CANCER IN SITU [None]
